FAERS Safety Report 8849287 (Version 2)
Quarter: 2013Q2

REPORT INFORMATION
  Report Type: Spontaneous
  Country: US (occurrence: None)
  Receive Date: 20120426
  Receipt Date: 20120703
  Transmission Date: 20140414
  Serious: No
  Sender: FDA-Public Use
  Company Number: PHEH2012US004311

PATIENT
  Age: 50 Year
  Sex: Female
  Weight: 59 kg

DRUGS (8)
  1. GILENYA [Suspect]
     Route: 048
  2. ZOLOFT (SERTRALINE HYDROCHLORIDE) TABLET [Concomitant]
  3. CLONAZEPAM (CLONAZEPAM) TABLET [Concomitant]
  4. METHYLPHENIDATE (METHYLPHENIDATE) TABLET [Concomitant]
  5. VITAMIN B12 (CYANOCOBALAMIN) TABLET [Concomitant]
  6. FISH OIL (FISH OIL) CAPSULE [Concomitant]
  7. VITAMIN D (ERGOCALCIFEROL) CAPSULE [Concomitant]
  8. VITAMIN B6 (PYRIDOXINE HYDROCHLORIDE) TABLET [Concomitant]

REACTIONS (1)
  - Urine odour abnormal [None]
